FAERS Safety Report 22062633 (Version 2)
Quarter: 2023Q1

REPORT INFORMATION
  Report Type: Report from Study
  Country: US (occurrence: None)
  Receive Date: 20230306
  Receipt Date: 20230314
  Transmission Date: 20230417
  Serious: Yes (Death, Life-Threatening, Other)
  Sender: FDA-Public Use
  Company Number: 2023A051483

PATIENT
  Age: 40 Year

DRUGS (8)
  1. PROPRANOLOL [Interacting]
     Active Substance: PROPRANOLOL HYDROCHLORIDE
  2. OMEPRAZOLE [Suspect]
     Active Substance: OMEPRAZOLE
  3. BUPRENORPHINE\NALOXONE [Interacting]
     Active Substance: BUPRENORPHINE\NALOXONE
  4. GABAPENTIN [Interacting]
     Active Substance: GABAPENTIN
  5. AMITRIPTYLINE [Interacting]
     Active Substance: AMITRIPTYLINE
  6. NORTRIPTYLINE [Interacting]
     Active Substance: NORTRIPTYLINE
  7. DEXTROMETHORPHAN [Interacting]
     Active Substance: DEXTROMETHORPHAN
  8. CITALOPRAM [Interacting]
     Active Substance: CITALOPRAM HYDROBROMIDE

REACTIONS (7)
  - Cardiomegaly [Fatal]
  - Accidental overdose [Fatal]
  - Toxicity to various agents [Fatal]
  - Pulmonary congestion [Fatal]
  - Pulmonary oedema [Fatal]
  - Pneumonia [Fatal]
  - Drug interaction [Fatal]
